FAERS Safety Report 24443365 (Version 2)
Quarter: 2024Q4

REPORT INFORMATION
  Report Type: Spontaneous
  Country: TR (occurrence: TR)
  Receive Date: 20241016
  Receipt Date: 20241018
  Transmission Date: 20250114
  Serious: Yes (Other)
  Sender: NOVARTIS
  Company Number: TR-002147023-NVSC2024TR200007

PATIENT
  Age: 10 Year
  Sex: Male

DRUGS (1)
  1. ILARIS [Suspect]
     Active Substance: CANAKINUMAB
     Indication: Familial mediterranean fever
     Dosage: UNK, QMO
     Route: 065
     Dates: start: 2017

REACTIONS (4)
  - Epilepsy [Unknown]
  - Familial mediterranean fever [Unknown]
  - Condition aggravated [Unknown]
  - Product supply issue [Unknown]
